FAERS Safety Report 6273385-1 (Version None)
Quarter: 2009Q3

REPORT INFORMATION
  Report Type: 
  Country: None (occurrence: None)
  Receive Date: 20090720
  Receipt Date: 20090715
  Transmission Date: 20100115
  Serious: Yes (Other)
  Sender: FDA-Public Use
  Company Number: DE-ABBOTT-08P-062-0469331-00

PATIENT
  Age: 30 Year
  Sex: Female

DRUGS (7)
  1. NORVIR [Suspect]
     Indication: ANTIVIRAL PROPHYLAXIS
     Dates: start: 20060925, end: 20070201
  2. SUSTIVA [Suspect]
     Indication: HIV INFECTION
     Dosage: 6000 MG DAILY
     Route: 048
     Dates: start: 20050101, end: 20060925
  3. SAQUINAVIR [Suspect]
     Indication: ANTIVIRAL PROPHYLAXIS
     Route: 048
     Dates: start: 20060925, end: 20070201
  4. COMBIVIR [Suspect]
     Indication: ANTIVIRAL PROPHYLAXIS
     Dates: start: 20040428, end: 20070201
  5. VALGANCICLOVIR HCL [Suspect]
     Indication: CYTOMEGALOVIRUS CHORIORETINITIS
     Dosage: DAILY
     Route: 048
     Dates: start: 20040101, end: 20060925
  6. COTRIM [Suspect]
     Indication: DRUG USE FOR UNKNOWN INDICATION
     Dates: end: 20060925
  7. COTRIM [Concomitant]
     Indication: DRUG USE FOR UNKNOWN INDICATION

REACTIONS (3)
  - COMPLICATION OF PREGNANCY [None]
  - PREMATURE LABOUR [None]
  - PREMATURE RUPTURE OF MEMBRANES [None]
